FAERS Safety Report 9217091 (Version 2)
Quarter: 2013Q4

REPORT INFORMATION
  Report Type: Spontaneous
  Country: US (occurrence: US)
  Receive Date: 20130408
  Receipt Date: 20131018
  Transmission Date: 20140711
  Serious: Yes (Hospitalization, Other)
  Sender: FDA-Public Use
  Company Number: US-BAYER-2013-039727

PATIENT
  Age: 32 Year
  Sex: Female

DRUGS (1)
  1. MIRENA [Suspect]
     Indication: CONTRACEPTION
     Dosage: 20 MCG/24HR, CONT
     Route: 015
     Dates: start: 201003, end: 201206

REACTIONS (13)
  - Device dislocation [None]
  - Vaginal haemorrhage [None]
  - Carcinoma in situ [None]
  - Arteriovenous malformation [None]
  - Uterine mass [None]
  - Uterine haemorrhage [None]
  - Crohn^s disease [None]
  - Vaginal haemorrhage [Not Recovered/Not Resolved]
  - Pain [Not Recovered/Not Resolved]
  - Adenomyosis [None]
  - Endometriosis [None]
  - Infertility female [None]
  - Nightmare [None]
